FAERS Safety Report 10372938 (Version 2)
Quarter: 2014Q3

REPORT INFORMATION
  Report Type: Spontaneous
  Country: US (occurrence: US)
  Receive Date: 20140808
  Receipt Date: 20140808
  Transmission Date: 20150326
  Serious: No
  Sender: FDA-Public Use
  Company Number: US-BRISTOL-MYERS SQUIBB COMPANY-19812791

PATIENT
  Age: 36 Year
  Sex: Female

DRUGS (1)
  1. SPRYCEL [Suspect]
     Active Substance: DASATINIB
     Indication: CHRONIC MYELOID LEUKAEMIA
     Route: 048
     Dates: start: 20130611

REACTIONS (11)
  - Bone pain [Unknown]
  - Insomnia [Unknown]
  - Arthralgia [Unknown]
  - Anxiety [Unknown]
  - Asthenia [Recovering/Resolving]
  - Migraine [Unknown]
  - Musculoskeletal pain [Unknown]
  - Haemoglobin decreased [Unknown]
  - Nausea [Recovered/Resolved]
  - Headache [Not Recovered/Not Resolved]
  - Nasopharyngitis [Unknown]

NARRATIVE: CASE EVENT DATE: 2013
